FAERS Safety Report 25222584 (Version 2)
Quarter: 2025Q2

REPORT INFORMATION
  Report Type: Spontaneous
  Country: FR (occurrence: FR)
  Receive Date: 20250421
  Receipt Date: 20250502
  Transmission Date: 20250717
  Serious: Yes (Other)
  Sender: ORGANON
  Company Number: FR-BRISTOL-MYERS SQUIBB COMPANY-2024-186993

PATIENT
  Age: 72 Year
  Sex: Male
  Weight: 61 kg

DRUGS (7)
  1. EZETIMIBE\SIMVASTATIN [Interacting]
     Active Substance: EZETIMIBE\SIMVASTATIN
     Indication: Product used for unknown indication
     Dosage: 1 TABLET IN THE EVENING
  2. ELIQUIS [Interacting]
     Active Substance: APIXABAN
     Indication: Atrial fibrillation
     Dosage: 5 MILLIGRAM, 0.5 DAYS (BID)
     Route: 048
     Dates: start: 2022
  3. ELIQUIS [Interacting]
     Active Substance: APIXABAN
     Dosage: 2.5 MILLIGRAM, 0.5 DAYS (BID) (TO SWALLOW WITH GLASS OF WATER)
     Route: 048
     Dates: start: 202409
  4. AMLODIPINE [Interacting]
     Active Substance: AMLODIPINE BESYLATE
     Indication: Blood pressure abnormal
     Dosage: 10 MILLIGRAM, QD (AM) (IN THE MORNING)
  5. NEBIVOLOL [Interacting]
     Active Substance: NEBIVOLOL
     Indication: Product used for unknown indication
     Dosage: 1/4 TABLET IN THE MORNING DURING A MEAL
  6. IRBESARTAN [Interacting]
     Active Substance: IRBESARTAN
     Indication: Product used for unknown indication
  7. IRBESARTAN [Suspect]
     Active Substance: IRBESARTAN
     Indication: Product used for unknown indication

REACTIONS (5)
  - Pulmonary alveolar haemorrhage [Recovered/Resolved]
  - Renal impairment [Unknown]
  - Drug interaction [Unknown]
  - Glomerular filtration rate decreased [Unknown]
  - Haemoptysis [Unknown]

NARRATIVE: CASE EVENT DATE: 20240821
